FAERS Safety Report 5408253-8 (Version None)
Quarter: 2007Q3

REPORT INFORMATION
  Report Type: 
  Country: None (occurrence: None)
  Receive Date: 20070806
  Receipt Date: 20070806
  Transmission Date: 20080115
  Serious: No
  Sender: FDA-Public Use
  Company Number: None

PATIENT
  Age: 89 Year
  Sex: Male

DRUGS (2)
  1. MIRTAZAPINE [Suspect]
     Dosage: 15MG HS PO
     Route: 048
     Dates: start: 20061130
  2. RISPERIDONE [Suspect]
     Dosage: 0.25MG BID PO
     Route: 048

REACTIONS (1)
  - WEIGHT INCREASED [None]
